FAERS Safety Report 5819925-5 (Version None)
Quarter: 2008Q3

REPORT INFORMATION
  Report Type: 
  Country: None (occurrence: None)
  Receive Date: 20080717
  Receipt Date: 20080710
  Transmission Date: 20090109
  Serious: Yes (Hospitalization)
  Sender: FDA-Public Use
  Company Number: 2008SP009760

PATIENT
  Age: 52 Year
  Sex: Male

DRUGS (11)
  1. PEG-INTRON [Suspect]
     Indication: HEPATITIS C
     Dosage: 120 MCG;QW;SC
     Route: 058
     Dates: end: 20080522
  2. REBETOL [Suspect]
     Indication: HEPATITIS C
     Dosage: 800 MG;QD;PO
     Route: 048
     Dates: end: 20080522
  3. NORVASC [Concomitant]
  4. AVAPRO [Concomitant]
  5. PROVENTIL [Concomitant]
  6. HUMALOG [Concomitant]
  7. LOPRESSOR [Concomitant]
  8. ZYRTEC [Concomitant]
  9. PLAVIX [Concomitant]
  10. FOLIC ACID [Concomitant]
  11. THIAMINE [Concomitant]

REACTIONS (7)
  - ALCOHOL POISONING [None]
  - BLOOD GLUCOSE INCREASED [None]
  - BLOOD PRESSURE INCREASED [None]
  - DIZZINESS [None]
  - NO THERAPEUTIC RESPONSE [None]
  - RESPIRATORY RATE INCREASED [None]
  - TREATMENT NONCOMPLIANCE [None]
